FAERS Safety Report 4346613-7 (Version None)
Quarter: 2004Q2

REPORT INFORMATION
  Report Type: 
  Country: None (occurrence: None)
  Receive Date: 20040426
  Receipt Date: 20040323
  Transmission Date: 20050107
  Serious: Yes (Other)
  Sender: FDA-Public Use
  Company Number: US-BRISTOL-MYERS SQUIBB COMPANY-12542775

PATIENT
  Age: 14 Year
  Sex: Female
  Weight: 50 kg

DRUGS (11)
  1. MAXIPIME [Suspect]
     Indication: PSEUDOMONAS INFECTION
     Dates: start: 20030214, end: 20030304
  2. GENTAMICIN [Suspect]
     Dates: start: 20030214, end: 20030304
  3. VANCOMYCIN [Concomitant]
     Dates: start: 20030217, end: 20030310
  4. MULTI-VITAMIN [Concomitant]
  5. ADEKS [Concomitant]
  6. PANCREASE MT 20 [Concomitant]
  7. ZITHROMAX [Concomitant]
     Dates: start: 20030219
  8. TOBRAMYCIN [Concomitant]
     Dosage: NOT WHEN RECEIVING GENTAMYCIN
  9. CIPRO [Concomitant]
     Route: 048
     Dates: start: 20030304, end: 20030310
  10. PULMOZYME [Concomitant]
  11. ALBUTEROL [Concomitant]

REACTIONS (4)
  - CONVULSION [None]
  - NEPHRITIS INTERSTITIAL [None]
  - NEUROTOXICITY [None]
  - RENAL FAILURE [None]
